FAERS Safety Report 18258726 (Version 1)
Quarter: 2020Q3

REPORT INFORMATION
  Report Type: Report from Study
  Country: US (occurrence: US)
  Receive Date: 20200911
  Receipt Date: 20200911
  Transmission Date: 20201103
  Serious: Yes (Hospitalization, Other)
  Sender: FDA-Public Use
  Company Number: US-GILEAD-2020-0494369

PATIENT
  Age: 78 Year
  Sex: Female

DRUGS (2)
  1. AMBRISENTAN [Suspect]
     Active Substance: AMBRISENTAN
     Indication: COR PULMONALE
     Dosage: 5 MG, QD
     Route: 065
     Dates: start: 20180803
  2. DOXYCYCL HYC [Concomitant]

REACTIONS (2)
  - Pelvic fracture [Unknown]
  - Fall [Unknown]

NARRATIVE: CASE EVENT DATE: 20200815
